FAERS Safety Report 5478106-8 (Version None)
Quarter: 2007Q4

REPORT INFORMATION
  Report Type: 
  Country: None (occurrence: None)
  Receive Date: 20071005
  Receipt Date: 20061011
  Transmission Date: 20080405
  Serious: No
  Sender: FDA-Public Use
  Company Number: US-BRISTOL-MYERS SQUIBB COMPANY-13538335

PATIENT
  Age: 53 Year
  Sex: Female
  Weight: 79 kg

DRUGS (2)
  1. AVAPRO [Suspect]
     Indication: HYPERTENSION
     Dates: start: 20010412
  2. FLEXERIL [Concomitant]

REACTIONS (1)
  - MYALGIA [None]
